FAERS Safety Report 7244197-7 (Version None)
Quarter: 2011Q1

REPORT INFORMATION
  Report Type: 
  Country: None (occurrence: None)
  Receive Date: 20110125
  Receipt Date: 20101216
  Transmission Date: 20110831
  Serious: Yes (Hospitalization)
  Sender: FDA-Public Use
  Company Number: US-BAYER-201037716NA

PATIENT
  Sex: Female
  Weight: 65.76 kg

DRUGS (9)
  1. YASMIN [Suspect]
     Indication: ACNE
     Dosage: UNK
     Dates: start: 20030101
  2. WELLBUTRIN [Concomitant]
  3. ADVIL [Concomitant]
  4. ADDERALL 10 [Concomitant]
     Indication: ATTENTION DEFICIT/HYPERACTIVITY DISORDER
  5. OCELLA [Suspect]
     Indication: PRODUCT USED FOR UNKNOWN INDICATION
  6. DARVOCET [Concomitant]
     Dosage: UNK
     Dates: start: 20030930
  7. YASMIN [Suspect]
     Indication: CONTRACEPTION
  8. YAZ [Suspect]
     Indication: PRODUCT USED FOR UNKNOWN INDICATION
  9. CODEINE [Concomitant]
     Dosage: UNK
     Dates: start: 20030930

REACTIONS (5)
  - PAIN IN EXTREMITY [None]
  - THROMBOSIS [None]
  - DEEP VEIN THROMBOSIS [None]
  - OEDEMA PERIPHERAL [None]
  - TENDERNESS [None]
